FAERS Safety Report 23483324 (Version 2)
Quarter: 2024Q1

REPORT INFORMATION
  Report Type: Spontaneous
  Country: CA (occurrence: CA)
  Receive Date: 20240205
  Receipt Date: 20240327
  Transmission Date: 20240410
  Serious: Yes (Other)
  Sender: FDA-Public Use
  Company Number: CA-PFIZER INC-202400031607

PATIENT
  Age: 65 Year
  Sex: Female

DRUGS (7)
  1. RUXIENCE [Suspect]
     Active Substance: RITUXIMAB-PVVR
     Indication: Rheumatoid arthritis
     Dosage: 1000 MG, DAY 1 AND 15
     Route: 042
     Dates: start: 20201028, end: 20201112
  2. RUXIENCE [Suspect]
     Active Substance: RITUXIMAB-PVVR
     Dosage: 1000 MG, DAY 1 AND 15
     Dates: start: 20210602, end: 20210616
  3. ADALAT [Concomitant]
     Active Substance: NIFEDIPINE
     Dosage: 1 DF
  4. ENALAPRIL [Concomitant]
     Active Substance: ENALAPRIL
     Dosage: 1 DF
  5. MYCOPHENOLIC ACID [Concomitant]
     Active Substance: MYCOPHENOLIC ACID
     Dosage: 1 DF
  6. METOPROLOL [Concomitant]
     Active Substance: METOPROLOL
     Dosage: 1 DF
  7. OMEPRAZOLE [Concomitant]
     Active Substance: OMEPRAZOLE
     Dosage: 1 DF

REACTIONS (1)
  - Limb injury [Not Recovered/Not Resolved]
